FAERS Safety Report 13429012 (Version 1)
Quarter: 2017Q2

REPORT INFORMATION
  Report Type: Spontaneous
  Country: CN (occurrence: CN)
  Receive Date: 20170411
  Receipt Date: 20170411
  Transmission Date: 20170830
  Serious: Yes (Other)
  Sender: FDA-Public Use
  Company Number: CN-PFIZER INC-2017154325

PATIENT
  Age: 13 Year

DRUGS (1)
  1. ZOLOFT [Suspect]
     Active Substance: SERTRALINE HYDROCHLORIDE
     Indication: EXAGGERATED STARTLE RESPONSE
     Dosage: 1 DF, 1X/DAY
     Route: 048
     Dates: start: 20170328, end: 20170402

REACTIONS (3)
  - Off label use [Unknown]
  - Epilepsy [Recovered/Resolved]
  - Tic [Recovered/Resolved]

NARRATIVE: CASE EVENT DATE: 20170402
